FAERS Safety Report 5509670-8 (Version None)
Quarter: 2007Q4

REPORT INFORMATION
  Report Type: 
  Country: None (occurrence: None)
  Receive Date: 20071107
  Receipt Date: 20071107
  Transmission Date: 20080405
  Serious: Yes (Hospitalization)
  Sender: FDA-Public Use
  Company Number: None

PATIENT
  Age: 68 Year
  Sex: Male

DRUGS (2)
  1. ATENOLOL [Suspect]
     Dosage: 50MG EVERY DAY PO
     Route: 048
     Dates: start: 20030509, end: 20070702
  2. HYDROCHLOROTHIAZIDE [Suspect]
     Dosage: 12.5MG EVERY DAY PO
     Route: 048
     Dates: start: 20060126, end: 20070702

REACTIONS (3)
  - BRADYCARDIA [None]
  - HYPOTENSION [None]
  - SYNCOPE [None]
